FAERS Safety Report 6915177-3 (Version None)
Quarter: 2010Q3

REPORT INFORMATION
  Report Type: 
  Country: None (occurrence: None)
  Receive Date: 20100809
  Receipt Date: 20100730
  Transmission Date: 20110219
  Serious: Yes (Other)
  Sender: FDA-Public Use
  Company Number: US-MILLENNIUM PHARMACEUTICALS, INC.-2010-04158

PATIENT
  Sex: Female

DRUGS (4)
  1. VELCADE [Suspect]
     Indication: PRODUCT USED FOR UNKNOWN INDICATION
     Dosage: 1.6 MG/M2, CYCLIC
  2. VELCADE [Suspect]
     Dosage: 1.3 MG/M2, CYCLIC
  3. DACARBAZINE [Suspect]
     Dosage: 580 MG/M2, CYCLIC
  4. DACARBAZINE [Suspect]
     Dosage: 250 MG/M2, CYCLIC

REACTIONS (1)
  - PORTAL HYPERTENSION [None]
